FAERS Safety Report 16997893 (Version 1)
Quarter: 2019Q4

REPORT INFORMATION
  Report Type: Spontaneous
  Country: IT (occurrence: IT)
  Receive Date: 20191106
  Receipt Date: 20191106
  Transmission Date: 20200122
  Serious: Yes (Hospitalization)
  Sender: FDA-Public Use
  Company Number: IT-TEVA-2019-IT-1132184

PATIENT
  Age: 13 Year
  Sex: Male

DRUGS (7)
  1. RISPERIDONE. [Suspect]
     Active Substance: RISPERIDONE
     Indication: PSYCHOTIC DISORDER
     Dosage: .25 MILLIGRAM DAILY;
     Route: 048
  2. LEUCOVORIN. [Concomitant]
     Active Substance: LEUCOVORIN
     Dosage: 40 MG/M2 DAILY;
     Route: 042
  3. DOXORUBICIN [Suspect]
     Active Substance: DOXORUBICIN
     Indication: OSTEOSARCOMA
     Route: 065
  4. CIS-DIAMMINEDICHLOROPLATINUM (CISPLATIN) [Suspect]
     Active Substance: CISPLATIN
     Indication: OSTEOSARCOMA
     Route: 065
  5. LORAZEPAM. [Suspect]
     Active Substance: LORAZEPAM
     Indication: STATUS EPILEPTICUS
     Route: 040
  6. METHOTREXATE. [Suspect]
     Active Substance: METHOTREXATE
     Indication: OSTEOSARCOMA
     Dosage: 12G/M2
     Route: 065
  7. PHENYTOIN. [Suspect]
     Active Substance: PHENYTOIN
     Indication: STATUS EPILEPTICUS
     Route: 040

REACTIONS (5)
  - Off label use [Unknown]
  - Psychotic disorder [Recovered/Resolved]
  - Status epilepticus [Recovered/Resolved]
  - Drug ineffective [Unknown]
  - Encephalopathy [Recovered/Resolved]
